FAERS Safety Report 25902341 (Version 1)
Quarter: 2025Q4

REPORT INFORMATION
  Report Type: Spontaneous
  Country: EU (occurrence: EU)
  Receive Date: 20251009
  Receipt Date: 20251009
  Transmission Date: 20260117
  Serious: Yes (Life-Threatening, Hospitalization, Other)
  Sender: SANDOZ
  Company Number: EU-002147023-NVSC2021PL044861

PATIENT
  Age: 49 Year
  Sex: Male

DRUGS (20)
  1. CYTARABINE [Suspect]
     Active Substance: CYTARABINE
     Indication: Diffuse large B-cell lymphoma stage IV
     Dosage: UNK UNK, CYCLIC, REDUCED DOSES
     Route: 065
     Dates: end: 20160218
  2. CYTARABINE [Suspect]
     Active Substance: CYTARABINE
     Indication: Post transplant lymphoproliferative disorder
     Dosage: AS A PART OF R-CODOX AND R-IVAC REGIMEN; 4 CYCLES OF R-CODOX FOLLOWED BY R-IVAC 10-NOV-2015 00:00
     Route: 065
     Dates: end: 20160218
  3. CYCLOPHOSPHAMIDE [Suspect]
     Active Substance: CYCLOPHOSPHAMIDE
     Indication: Diffuse large B-cell lymphoma stage IV
     Dosage: 4 CYCLES OF R-CODOX 10-NOV-2015 00:00
     Route: 065
     Dates: end: 20160218
  4. CYCLOPHOSPHAMIDE [Suspect]
     Active Substance: CYCLOPHOSPHAMIDE
     Indication: Post transplant lymphoproliferative disorder
     Dosage: UNK, CYCLIC, REDUCED DOSES
     Route: 065
     Dates: end: 20160218
  5. DOXORUBICIN [Suspect]
     Active Substance: DOXORUBICIN
     Indication: Post transplant lymphoproliferative disorder
     Dosage: 4 CYCLES OF R-CODOX 10-NOV-2015 00:00
     Route: 065
     Dates: end: 20160218
  6. DOXORUBICIN [Suspect]
     Active Substance: DOXORUBICIN
     Indication: Diffuse large B-cell lymphoma stage IV
     Dosage: UNK UNK, CYCLIC, REDUCED DOSES
     Route: 065
     Dates: end: 20160218
  7. IFOSFAMIDE [Suspect]
     Active Substance: IFOSFAMIDE
     Indication: Post transplant lymphoproliferative disorder
     Dosage: R-IVAC REGIMEN  10-NOV-2015 00:00
     Route: 065
     Dates: end: 20160218
  8. IFOSFAMIDE [Suspect]
     Active Substance: IFOSFAMIDE
     Indication: Diffuse large B-cell lymphoma stage IV
     Dosage: UNK, CYCLIC, REDUCED DOSES
     Route: 065
     Dates: end: 20160218
  9. METHOTREXATE [Suspect]
     Active Substance: METHOTREXATE
     Indication: Post transplant lymphoproliferative disorder
     Dosage: R-IVAC REGIMEN 10-NOV-2015 00:00
     Route: 065
     Dates: end: 20160218
  10. METHOTREXATE [Suspect]
     Active Substance: METHOTREXATE
     Indication: Diffuse large B-cell lymphoma stage IV
     Dosage: UNK, CYCLIC, REDUCED DOSES
     Route: 065
     Dates: end: 20160218
  11. MYCOPHENOLATE MOFETIL [Suspect]
     Active Substance: MYCOPHENOLATE MOFETIL
     Indication: Immunosuppressant drug therapy
     Dosage: UNK
     Route: 065
     Dates: start: 2006, end: 201510
  12. RITUXIMAB [Suspect]
     Active Substance: RITUXIMAB
     Indication: Diffuse large B-cell lymphoma stage IV
     Dosage: UNK, CYCLIC, REDUCED DOSES
     Route: 065
     Dates: end: 20160218
  13. RITUXIMAB [Suspect]
     Active Substance: RITUXIMAB
     Indication: Post transplant lymphoproliferative disorder
     Dosage: AS A PART OF R-CODOX AND R-IVAC REGIM   10-NOV-2015 00:00EN; 4 CYCLES OF R-CODOX FOLLOWED BY R-IVAC
     Route: 065
     Dates: end: 20160218
  14. TACROLIMUS [Suspect]
     Active Substance: TACROLIMUS
     Indication: Immunosuppressant drug therapy
     Dosage: UNK
     Route: 065
     Dates: start: 2006
  15. VINCRISTINE [Suspect]
     Active Substance: VINCRISTINE
     Indication: Post transplant lymphoproliferative disorder
     Dosage: 4 CYCLES OF R-CODOX 10-NOV-2015 00:00
     Route: 065
     Dates: end: 20160218
  16. VINCRISTINE [Suspect]
     Active Substance: VINCRISTINE
     Indication: Diffuse large B-cell lymphoma stage IV
     Dosage: UNK, CYCLIC, REDUCED DOSES
     Route: 065
     Dates: end: 20160218
  17. EVEROLIMUS [Concomitant]
     Active Substance: EVEROLIMUS
     Indication: Liver transplant
     Dosage: UNK
     Route: 065
     Dates: start: 20160218
  18. EVEROLIMUS [Concomitant]
     Active Substance: EVEROLIMUS
     Indication: Immunosuppressant drug therapy
  19. TACROLIMUS [Concomitant]
     Active Substance: TACROLIMUS
     Indication: Liver transplant
     Dosage: UNK
     Route: 065
     Dates: start: 20160218
  20. TACROLIMUS [Concomitant]
     Active Substance: TACROLIMUS
     Indication: Immunosuppressant drug therapy

REACTIONS (13)
  - High grade B-cell lymphoma Burkitt-like lymphoma stage IV [Recovered/Resolved]
  - Post transplant lymphoproliferative disorder [Recovered/Resolved]
  - Oedema peripheral [Recovered/Resolved]
  - Pleural effusion [Recovered/Resolved]
  - Epstein-Barr virus antibody positive [Unknown]
  - Anaemia [Unknown]
  - Febrile neutropenia [Unknown]
  - Cytomegalovirus test positive [Unknown]
  - Stenotrophomonas infection [Recovered/Resolved]
  - Escherichia infection [Recovered/Resolved]
  - Staphylococcal infection [Recovered/Resolved]
  - Neutropenia [Recovered/Resolved]
  - Product use in unapproved indication [Unknown]

NARRATIVE: CASE EVENT DATE: 20151001
